FAERS Safety Report 24421651 (Version 2)
Quarter: 2024Q4

REPORT INFORMATION
  Report Type: Spontaneous
  Country: FR (occurrence: FR)
  Receive Date: 20241010
  Receipt Date: 20241017
  Transmission Date: 20250115
  Serious: Yes (Other)
  Sender: ROCHE
  Company Number: FR-002147023-NVSC2024FR197492

PATIENT
  Age: 44 Year
  Sex: Female
  Weight: 82 kg

DRUGS (3)
  1. XOLAIR [Suspect]
     Active Substance: OMALIZUMAB
     Indication: Urticaria chronic
     Dosage: 300 MG
     Route: 050
     Dates: start: 20240911, end: 20240911
  2. DESOGESTREL [Concomitant]
     Active Substance: DESOGESTREL
     Indication: Product used for unknown indication
     Dosage: UNK
     Route: 065
     Dates: start: 2010
  3. LEVOCETIRIZINE [Concomitant]
     Active Substance: LEVOCETIRIZINE
     Indication: Product used for unknown indication
     Dosage: UNK
     Route: 065
     Dates: start: 2012

REACTIONS (2)
  - Eye infection toxoplasmal [Not Recovered/Not Resolved]
  - Optic neuritis [Unknown]

NARRATIVE: CASE EVENT DATE: 20240926
